FAERS Safety Report 8059365-4 (Version None)
Quarter: 2012Q1

REPORT INFORMATION
  Report Type: 
  Country: None (occurrence: None)
  Receive Date: 20120120
  Receipt Date: 20120120
  Transmission Date: 20120608
  Serious: No
  Sender: FDA-Public Use
  Company Number: None

PATIENT
  Age: 61 Year
  Sex: Female

DRUGS (2)
  1. CIPROFLOXACIN [Suspect]
     Indication: PROPHYLAXIS
     Dates: start: 20120113, end: 20120113
  2. CIPROFLOXACIN [Suspect]
     Indication: GENITOURINARY OPERATION
     Dates: start: 20120113, end: 20120113

REACTIONS (1)
  - INFUSION SITE RASH [None]
